FAERS Safety Report 24180200 (Version 1)
Quarter: 2024Q3

REPORT INFORMATION
  Report Type: Spontaneous
  Country: US (occurrence: US)
  Receive Date: 20240806
  Receipt Date: 20240806
  Transmission Date: 20241016
  Serious: No
  Sender: Tarsus Pharmaceuticals
  Company Number: US-TARSUS PHARMACEUTICALS-TSP-US-2024-000199

PATIENT
  Age: 77 Year
  Sex: Female

DRUGS (1)
  1. XDEMVY [Suspect]
     Active Substance: LOTILANER
     Indication: Demodex blepharitis
     Dosage: 1 DROP, BID (INTO BOTH EYES )
     Route: 047
     Dates: start: 20231229, end: 2024

REACTIONS (2)
  - Vision blurred [Unknown]
  - Instillation site irritation [Unknown]

NARRATIVE: CASE EVENT DATE: 20231229
